FAERS Safety Report 8068929-3 (Version None)
Quarter: 2012Q1

REPORT INFORMATION
  Report Type: 
  Country: None (occurrence: None)
  Receive Date: 20120118
  Receipt Date: 20120105
  Transmission Date: 20120608
  Serious: Yes (Hospitalization)
  Sender: FDA-Public Use
  Company Number: 1000027109

PATIENT
  Age: 62 Year
  Sex: Female

DRUGS (1)
  1. ESCITALOPRAM OXALATE [Suspect]
     Dosage: 10 MG (10 MG,1 IN 1 D),ORAL
     Route: 048

REACTIONS (5)
  - SOMNOLENCE [None]
  - VERTIGO [None]
  - MONOPLEGIA [None]
  - FATIGUE [None]
  - FALL [None]
